FAERS Safety Report 17896478 (Version 1)
Quarter: 2020Q2

REPORT INFORMATION
  Report Type: Spontaneous
  Country: US (occurrence: US)
  Receive Date: 20200615
  Receipt Date: 20200615
  Transmission Date: 20200714
  Serious: No
  Sender: FDA-Public Use
  Company Number: US-VERTEX PHARMACEUTICALS-2020-012661

PATIENT
  Sex: Female
  Weight: 46 kg

DRUGS (2)
  1. SCANDISHAKE MIX [Suspect]
     Active Substance: DIETARY SUPPLEMENT
     Indication: NUTRITIONAL SUPPLEMENTATION
     Route: 048
  2. TRIKAFTA [Suspect]
     Active Substance: ELEXACAFTOR\IVACAFTOR\TEZACAFTOR
     Indication: CYSTIC FIBROSIS
     Dosage: 2 TABLETS 100 MG ELEXACAFTOR/ 50 MG TEZACAFTOR/ 75 MG IVACAFTOR AM 1 TABLET 150MG IVACAFTOR PM
     Route: 048
     Dates: start: 20191127

REACTIONS (2)
  - Abdominal distension [Unknown]
  - Abdominal discomfort [Not Recovered/Not Resolved]
